FAERS Safety Report 24754948 (Version 1)
Quarter: 2024Q4

REPORT INFORMATION
  Report Type: Report from Study
  Country: CO (occurrence: CO)
  Receive Date: 20241219
  Receipt Date: 20241219
  Transmission Date: 20250115
  Serious: Yes (Other)
  Sender: REGENERON
  Company Number: CO-BAYER-2024A107407

PATIENT
  Age: 79 Year
  Sex: Male

DRUGS (6)
  1. EYLEA [Suspect]
     Active Substance: AFLIBERCEPT
     Indication: Neovascular age-related macular degeneration
     Dosage: 2 MG , RIGHT EYE, SOLUTION FOR INJECTION, 40 MG/ML
     Route: 031
     Dates: start: 20240322, end: 20240322
  2. EYLEA [Suspect]
     Active Substance: AFLIBERCEPT
     Dosage: 2 MG , RIGHT EYE, SOLUTION FOR INJECTION, 40 MG/ML
     Route: 031
     Dates: start: 20240510, end: 20240510
  3. EYLEA [Suspect]
     Active Substance: AFLIBERCEPT
     Dosage: RIGHT EYE, SOLUTION FOR INJECTION, STRENGTH- 40MG/ML
     Route: 031
     Dates: start: 20240618, end: 20240618
  4. EYLEA [Suspect]
     Active Substance: AFLIBERCEPT
     Dosage: UNK, SOLUTION FOR INJECTION, STRENGTH- 40MG/ML
     Dates: start: 20240805, end: 20240805
  5. EYLEA [Suspect]
     Active Substance: AFLIBERCEPT
     Dosage: UNK, SOLUTION FOR INJECTION, STRENGTH- 40MG/ML
     Dates: start: 20241010, end: 20241010
  6. EYLEA [Suspect]
     Active Substance: AFLIBERCEPT
     Dosage: UNK, SOLUTION FOR INJECTION, STRENGTH- 40MG/ML
     Dates: start: 20241212

REACTIONS (12)
  - Neovascular age-related macular degeneration [Unknown]
  - Blindness [Not Recovered/Not Resolved]
  - Infarction [Unknown]
  - Fall [Recovered/Resolved]
  - Fall [Unknown]
  - Visual impairment [Unknown]
  - Joint injury [Unknown]
  - Contusion [Unknown]
  - Pain [Unknown]
  - Vision blurred [Not Recovered/Not Resolved]
  - Inappropriate schedule of product administration [Not Recovered/Not Resolved]
  - Drug ineffective [Unknown]

NARRATIVE: CASE EVENT DATE: 20240322
